FAERS Safety Report 8574090-9 (Version None)
Quarter: 2012Q3

REPORT INFORMATION
  Report Type: 
  Country: None (occurrence: None)
  Receive Date: 20120806
  Receipt Date: 20120731
  Transmission Date: 20120928
  Serious: Yes (Death, Other)
  Sender: FDA-Public Use
  Company Number: PHFR2011GB04202

PATIENT
  Sex: Male
  Weight: 119 kg

DRUGS (24)
  1. CLOZARIL [Suspect]
     Indication: SCHIZOPHRENIA
     Dates: start: 20051201
  2. CLOZARIL [Suspect]
     Dosage: 325 MG, QD
     Dates: start: 20080301
  3. CLOZARIL [Suspect]
     Dosage: 350 MG, QD
     Dates: end: 20100101
  4. CLOZARIL [Suspect]
     Dosage: 375 MG, QD
  5. ARIPIPRAZOLE [Concomitant]
  6. DEPAKOTE [Concomitant]
     Dosage: 250 MG, QD
     Dates: start: 20080301
  7. QUETIAPINE [Concomitant]
  8. CLOZARIL [Suspect]
     Dates: start: 20060125
  9. ESCITALOPRAM [Concomitant]
     Dosage: 10 MG, QD
  10. VALPROATE SODIUM [Concomitant]
     Indication: MOOD ALTERED
     Dosage: 200 MG, BID
  11. DIAZEPAM [Concomitant]
     Dosage: 2 MG, BID
  12. CLOPIXOL [Concomitant]
     Dosage: 10 MG, UNK
  13. DEPAKOTE [Concomitant]
     Dosage: 250 MG, TID
     Dates: start: 20080301
  14. AMISULPRIDE [Concomitant]
  15. RISPERIDONE [Concomitant]
  16. CLOZARIL [Suspect]
     Dosage: 350 MG, QD
  17. CLOZARIL [Suspect]
     Dosage: 250 MG, QD
     Dates: start: 20110301
  18. CLOZARIL [Suspect]
     Dosage: 225 MG, QD
  19. HALOPERIDOL [Concomitant]
  20. CLOZARIL [Suspect]
     Dosage: 300 MG, QD
  21. STELAZINE [Concomitant]
     Dosage: 75 MG, QD
  22. FLUOXETINE HCL [Concomitant]
     Dosage: 20 MG, QD
  23. DULOXETIME HYDROCHLORIDE [Concomitant]
  24. CITALOPRAM HYDROBROMIDE [Concomitant]

REACTIONS (24)
  - DIABETES MELLITUS [None]
  - HYPERTENSIVE HEART DISEASE [None]
  - RESPIRATORY TRACT INFECTION [None]
  - HEADACHE [None]
  - PSYCHOMOTOR RETARDATION [None]
  - INCREASED APPETITE [None]
  - PALPITATIONS [None]
  - CHEST PAIN [None]
  - AFFECTIVE DISORDER [None]
  - SCHIZOPHRENIA [None]
  - SUICIDAL IDEATION [None]
  - FATIGUE [None]
  - SLEEP DISORDER [None]
  - OVERDOSE [None]
  - ANXIETY [None]
  - DISTURBANCE IN ATTENTION [None]
  - SCHIZOAFFECTIVE DISORDER [None]
  - HYPERLIPIDAEMIA [None]
  - HALLUCINATION [None]
  - FEELING ABNORMAL [None]
  - DEPRESSED MOOD [None]
  - CONSTIPATION [None]
  - SPEECH DISORDER [None]
  - WEIGHT INCREASED [None]
